FAERS Safety Report 10353514 (Version 1)
Quarter: 2014Q3

REPORT INFORMATION
  Report Type: Spontaneous
  Country: US (occurrence: US)
  Receive Date: 20140731
  Receipt Date: 20140731
  Transmission Date: 20150326
  Serious: No
  Sender: FDA-Public Use
  Company Number: US-BIOGENIDEC-2014BI071849

PATIENT
  Age: 45 Year
  Sex: Female

DRUGS (1)
  1. TECFIDERA [Suspect]
     Active Substance: DIMETHYL FUMARATE
     Indication: MULTIPLE SCLEROSIS
     Dates: start: 20140704

REACTIONS (8)
  - Feeling hot [Not Recovered/Not Resolved]
  - Ear discomfort [Not Recovered/Not Resolved]
  - Fatigue [Unknown]
  - Abdominal discomfort [Recovered/Resolved with Sequelae]
  - Insomnia [Unknown]
  - Flushing [Not Recovered/Not Resolved]
  - Rash macular [Not Recovered/Not Resolved]
  - Erythema [Not Recovered/Not Resolved]

NARRATIVE: CASE EVENT DATE: 20140710
